FAERS Safety Report 7089231-2 (Version None)
Quarter: 2010Q4

REPORT INFORMATION
  Report Type: 
  Country: None (occurrence: None)
  Receive Date: 20101029
  Receipt Date: 20101026
  Transmission Date: 20110411
  Serious: Yes (Other)
  Sender: FDA-Public Use
  Company Number: WAES 1008FRA00018

PATIENT
  Age: 45 Year
  Sex: Male

DRUGS (14)
  1. TAB RALTEGRAVIR POTASSIUM [Suspect]
     Indication: HIV INFECTION
     Dosage: 800 MG/DAILY PO
     Route: 048
     Dates: start: 20100530
  2. RIFAMPIN [Suspect]
     Indication: TUBERCULOSIS
     Dosage: 600 MG/DAILY PO
     Route: 048
     Dates: start: 20100522, end: 20100810
  3. ISONIAZID [Suspect]
     Indication: TUBERCULOSIS
     Dosage: 400 MG/DAILY PO
     Route: 048
     Dates: start: 20100522, end: 20100810
  4. LAMIVUDINE [Suspect]
     Indication: HIV INFECTION
     Dosage: 300 MG/DAILY PO
     Route: 048
     Dates: start: 20100630
  5. TENOFOVIR [Suspect]
     Indication: HIV INFECTION
     Dosage: 300 MG/DAILY PO
     Route: 048
     Dates: start: 20100530
  6. ACYCLOVIR [Concomitant]
  7. AZITHROMYCIN [Concomitant]
  8. CIPROFLOXACIN [Concomitant]
  9. FOLINIC ACID [Concomitant]
  10. IVERMECTIN [Concomitant]
  11. OMEPRAZOLE [Concomitant]
  12. PYRAZINAMIDE [Concomitant]
  13. PYRIDOXINE HCL [Concomitant]
  14. SULFAMETHOXAZOLE AND TRIMETHOPRIM [Concomitant]

REACTIONS (3)
  - DRUG ERUPTION [None]
  - LEUKOPENIA [None]
  - NEUTROPENIA [None]
